FAERS Safety Report 8618653 (Version 2)
Quarter: 2012Q4

REPORT INFORMATION
  Report Type: 
  Country: US (occurrence: US)
  Receive Date: 20120618
  Receipt Date: 20120907
  Transmission Date: 20130627
  Serious: No
  Sender: FDA-Public Use
  Company Number: US-PFIZER INC-2012142571

PATIENT
  Age: 65 Year
  Sex: Female
  Weight: 74.38 kg

DRUGS (2)
  1. PREMARIN [Suspect]
     Indication: HORMONE REPLACEMENT THERAPY
     Dosage: 0.625 mg, daily
     Route: 048
     Dates: start: 1983
  2. PREVACID [Concomitant]
     Indication: GASTRIC DISORDER
     Dosage: 20 mg, daily

REACTIONS (1)
  - Alopecia [Not Recovered/Not Resolved]
